FAERS Safety Report 18583749 (Version 7)
Quarter: 2024Q4

REPORT INFORMATION
  Report Type: Spontaneous
  Country: JP (occurrence: JP)
  Receive Date: 20201207
  Receipt Date: 20241031
  Transmission Date: 20250114
  Serious: Yes (Hospitalization, Other)
  Sender: BRISTOL-MYERS SQUIBB COMPANY
  Company Number: JP-BRISTOL-MYERS SQUIBB COMPANY-BMS-2020-081722

PATIENT
  Age: 69 Year
  Sex: Male
  Weight: 41.1 kg

DRUGS (5)
  1. YERVOY [Suspect]
     Active Substance: IPILIMUMAB
     Indication: Metastatic renal cell carcinoma
     Dosage: 45 MILLIGRAM, Q3WK
     Route: 041
     Dates: start: 20200805, end: 20200916
  2. OPDIVO [Suspect]
     Active Substance: NIVOLUMAB
     Indication: Metastatic renal cell carcinoma
     Dosage: 240 MILLIGRAM, Q3WK
     Route: 041
     Dates: start: 20200805, end: 20200916
  3. OLMESARTAN [Concomitant]
     Active Substance: OLMESARTAN
     Indication: Product used for unknown indication
     Dosage: 20 MILLIGRAM, QD, AFTER BREAKFAST
     Route: 048
  4. AMLODIPINE [Concomitant]
     Active Substance: AMLODIPINE BESYLATE
     Indication: Product used for unknown indication
     Dosage: 5 MILLIGRAM, QD, AFTER BREAKFAST
     Route: 048
  5. ALLOPURINOL [Concomitant]
     Active Substance: ALLOPURINOL
     Indication: Product used for unknown indication
     Dosage: 100 MILLIGRAM, QD, AFTER BREAKFAST
     Route: 048

REACTIONS (5)
  - Immune-mediated hepatic disorder [Recovered/Resolved]
  - Adrenal insufficiency [Recovered/Resolved]
  - Fall [Unknown]
  - Lumbar vertebral fracture [Recovering/Resolving]
  - Malignant neoplasm progression [Unknown]

NARRATIVE: CASE EVENT DATE: 20200921
